FAERS Safety Report 4854597-8 (Version None)
Quarter: 2005Q4

REPORT INFORMATION
  Report Type: 
  Country: None (occurrence: None)
  Receive Date: 20051213
  Receipt Date: 20051206
  Transmission Date: 20060501
  Serious: Yes (Hospitalization, Other)
  Sender: FDA-Public Use
  Company Number: FRWYE210306DEC05

PATIENT
  Age: 51 Year
  Sex: Female

DRUGS (12)
  1. TAZOCILLINE (PIPERACILLIN/TAZOBACTAM, INJECTION) [Suspect]
     Dosage: 4 G 3X PER 1 DAY
     Route: 042
     Dates: start: 20051102, end: 20051104
  2. AMIKIN [Suspect]
     Dosage: 1 G 1X PER 1 DAY
     Route: 042
     Dates: start: 20051102, end: 20051103
  3. CIFLOX (CIPROFLOXACIN) [Suspect]
     Dates: start: 20051024, end: 20051102
  4. OROKEN (CEFIXIME, UNSPEC) [Suspect]
     Route: 048
     Dates: start: 20051028, end: 20051102
  5. STILNOX (ZOLPIDEM) [Concomitant]
  6. ZOLOFT [Concomitant]
  7. TAXOTERE [Concomitant]
  8. HERCEPTIN [Concomitant]
  9. LEVOTHYROXINE SODIUM [Concomitant]
  10. DEPAKENE [Concomitant]
  11. ALEPSAL (BELLADONNA EXTRACT/CAFFEINE/PHENOBARBITAL) [Concomitant]
  12. LEXOMIL (BROMAZEPAM) [Concomitant]

REACTIONS (3)
  - ERYTHEMA [None]
  - EYELID OEDEMA [None]
  - OEDEMA PERIPHERAL [None]
